APPROVED DRUG PRODUCT: OXACILLIN SODIUM
Active Ingredient: OXACILLIN SODIUM
Strength: EQ 250MG BASE
Dosage Form/Route: CAPSULE;ORAL
Application: A062222 | Product #001
Applicant: ANI PHARMACEUTICALS INC
Approved: Approved Prior to Jan 1, 1982 | RLD: No | RS: No | Type: DISCN